FAERS Safety Report 20814005 (Version 1)
Quarter: 2022Q2

REPORT INFORMATION
  Report Type: Spontaneous
  Country: ES (occurrence: ES)
  Receive Date: 20220511
  Receipt Date: 20220511
  Transmission Date: 20220720
  Serious: Yes (Other)
  Sender: FDA-Public Use
  Company Number: None

PATIENT
  Age: 22 Year
  Sex: Male

DRUGS (1)
  1. ALBUTEROL [Suspect]
     Active Substance: ALBUTEROL
     Indication: Asthmatic crisis
     Dosage: UNK, QID (2.5 MG C/6 HOURS)
     Route: 050
     Dates: start: 20201205, end: 20201208

REACTIONS (1)
  - Palmar erythema [Recovered/Resolved]

NARRATIVE: CASE EVENT DATE: 20201209
